FAERS Safety Report 5583983-6 (Version None)
Quarter: 2008Q1

REPORT INFORMATION
  Report Type: 
  Country: None (occurrence: None)
  Receive Date: 20080103
  Receipt Date: 20080103
  Transmission Date: 20080703
  Serious: Yes (Death)
  Sender: FDA-Public Use
  Company Number: None

PATIENT
  Age: 64 Year
  Sex: Male
  Weight: 93.8946 kg

DRUGS (1)
  1. PERSANTINE [Suspect]

REACTIONS (2)
  - ADVERSE DRUG REACTION [None]
  - MALAISE [None]
